FAERS Safety Report 17760414 (Version 1)
Quarter: 2020Q2

REPORT INFORMATION
  Report Type: Spontaneous
  Country: US (occurrence: US)
  Receive Date: 20200508
  Receipt Date: 20200508
  Transmission Date: 20200714
  Serious: Yes (Hospitalization)
  Sender: FDA-Public Use
  Company Number: None

PATIENT
  Age: 71 Year
  Sex: Male
  Weight: 89.81 kg

DRUGS (2)
  1. LEUPROLIDE ACETATE. [Suspect]
     Active Substance: LEUPROLIDE ACETATE
     Dates: end: 20190731
  2. CASODEX [Suspect]
     Active Substance: BICALUTAMIDE
     Dates: end: 20180411

REACTIONS (6)
  - Chest pain [None]
  - Atrial fibrillation [None]
  - Palpitations [None]
  - Chest discomfort [None]
  - Tachycardia [None]
  - Dyspnoea exertional [None]

NARRATIVE: CASE EVENT DATE: 20200127
